FAERS Safety Report 6416830-0 (Version None)
Quarter: 2009Q4

REPORT INFORMATION
  Report Type: 
  Country: None (occurrence: None)
  Receive Date: 20091027
  Receipt Date: 20091021
  Transmission Date: 20100525
  Serious: Yes (Other)
  Sender: FDA-Public Use
  Company Number: JP-GENENTECH-277090

PATIENT
  Age: 61 Year
  Sex: Male

DRUGS (12)
  1. RITUXAN [Suspect]
     Indication: MANTLE CELL LYMPHOMA
     Dosage: 250 MG/M2, UNK
     Route: 042
     Dates: start: 20081007
  2. ZEVALIN [Suspect]
     Indication: MANTLE CELL LYMPHOMA
     Dosage: 11.1 UNK, UNK
     Route: 042
  3. LOXOPROFEN [Concomitant]
     Indication: PROPHYLAXIS
     Dosage: 60 MG, QD
     Route: 048
     Dates: start: 20081007, end: 20081008
  4. OMEPRAZOLE [Concomitant]
     Indication: GASTRITIS
     Dosage: 20 MG, QD
     Route: 048
     Dates: start: 20081010
  5. SULFAMETH-TRIM DS [Concomitant]
     Indication: PROPHYLAXIS
     Dosage: 20 MG, QD
     Route: 048
     Dates: start: 20081010
  6. ENTECAVIR [Concomitant]
     Indication: HEPATITIS B
     Dosage: 0.5 MG, QD
     Route: 048
     Dates: start: 20081021
  7. FILGRASTIM [Concomitant]
     Indication: NEUTROPENIA
  8. ANTIPYRETIC NOS [Concomitant]
     Indication: PREMEDICATION
  9. ANTIHISTAMINE (UNK INGREDIENTS) [Concomitant]
     Indication: PREMEDICATION
  10. ANALGESIC (UNK INGREDIENTS) [Concomitant]
     Indication: PREMEDICATION
  11. RED BLOOD CELLS [Concomitant]
     Indication: DRUG USE FOR UNKNOWN INDICATION
  12. PLATELETS [Concomitant]
     Indication: DRUG USE FOR UNKNOWN INDICATION

REACTIONS (1)
  - BONE MARROW FAILURE [None]
